FAERS Safety Report 6985242-3 (Version None)
Quarter: 2010Q3

REPORT INFORMATION
  Report Type: 
  Country: None (occurrence: None)
  Receive Date: 20100915
  Receipt Date: 20100903
  Transmission Date: 20110219
  Serious: Yes (Other)
  Sender: FDA-Public Use
  Company Number: JP-SANOFI-AVENTIS-2010SA053186

PATIENT
  Age: 49 Year
  Sex: Male

DRUGS (1)
  1. TAXOTERE [Suspect]
     Dosage: DOSAGE UNKNOWN
     Route: 041

REACTIONS (1)
  - CEREBRAL INFARCTION [None]
